FAERS Safety Report 17143772 (Version 3)
Quarter: 2020Q1

REPORT INFORMATION
  Report Type: Spontaneous
  Country: NL (occurrence: NL)
  Receive Date: 20191211
  Receipt Date: 20200319
  Transmission Date: 20200409
  Serious: Yes (Hospitalization, Other)
  Sender: FDA-Public Use
  Company Number: NL-AUROBINDO-AUR-APL-2019-104629

PATIENT
  Age: 70 Year
  Sex: Male
  Weight: 85.9 kg

DRUGS (3)
  1. BASILIXIMAB [Suspect]
     Active Substance: BASILIXIMAB
     Indication: MYOCARDIAL INFARCTION
     Dosage: 20 MILLIGRAM
     Route: 065
     Dates: start: 20191020
  2. FOSINOPRIL [Suspect]
     Active Substance: FOSINOPRIL
     Indication: MYOCARDIAL INFARCTION
     Dosage: UNK
     Route: 065
     Dates: start: 20191103, end: 20191106
  3. BASILIXIMAB [Suspect]
     Active Substance: BASILIXIMAB
     Indication: RENAL TRANSPLANT
     Dosage: 20 MILLIGRAM
     Route: 065
     Dates: start: 20191016

REACTIONS (1)
  - Acute kidney injury [Recovered/Resolved]

NARRATIVE: CASE EVENT DATE: 20191105
